FAERS Safety Report 9778508 (Version 1)
Quarter: 2013Q4

REPORT INFORMATION
  Report Type: Spontaneous
  Country: US (occurrence: None)
  Receive Date: 20131220
  Receipt Date: 20131220
  Transmission Date: 20140711
  Serious: Yes (Life-Threatening)
  Sender: FDA-Public Use
  Company Number: None

PATIENT
  Age: 69 Year
  Sex: Male
  Weight: 93.8 kg

DRUGS (1)
  1. REGADENOSON [Suspect]
     Indication: HYPERTENSION
     Route: 042
     Dates: start: 20131209, end: 20131209

REACTIONS (3)
  - Bradycardia [None]
  - Hypotension [None]
  - Dizziness [None]
